FAERS Safety Report 23395285 (Version 1)
Quarter: 2024Q1

REPORT INFORMATION
  Report Type: Report from Study
  Country: PE (occurrence: PE)
  Receive Date: 20240112
  Receipt Date: 20240112
  Transmission Date: 20240409
  Serious: Yes (Hospitalization)
  Sender: FDA-Public Use
  Company Number: PE-JNJFOC-20231177414

PATIENT
  Age: 8 Decade
  Sex: Female

DRUGS (2)
  1. SIMPONI [Suspect]
     Active Substance: GOLIMUMAB
     Indication: Rheumatoid arthritis
     Dosage: LAST DRUG APPLICATION: 11-DEC-2023
     Route: 058
     Dates: start: 20221111
  2. SIMPONI [Suspect]
     Active Substance: GOLIMUMAB
     Route: 058

REACTIONS (2)
  - Tooth infection [Not Recovered/Not Resolved]
  - Off label use [Unknown]
